FAERS Safety Report 14221095 (Version 1)
Quarter: 2017Q4

REPORT INFORMATION
  Report Type: Spontaneous
  Country: US (occurrence: US)
  Receive Date: 20171124
  Receipt Date: 20171124
  Transmission Date: 20180321
  Serious: No
  Sender: FDA-Public Use
  Company Number: US-BRISTOL-MYERS SQUIBB COMPANY-BMS-2017-106170

PATIENT
  Sex: Male
  Weight: 82.81 kg

DRUGS (1)
  1. YERVOY [Suspect]
     Active Substance: IPILIMUMAB
     Indication: MALIGNANT MELANOMA
     Dosage: 830 MG, UNK
     Route: 042
     Dates: start: 20160518

REACTIONS (2)
  - Dizziness [Unknown]
  - Pallor [Unknown]
